FAERS Safety Report 5456292-3 (Version None)
Quarter: 2007Q3

REPORT INFORMATION
  Report Type: 
  Country: None (occurrence: None)
  Receive Date: 20070918
  Receipt Date: 20070430
  Transmission Date: 20080115
  Serious: Yes (Hospitalization)
  Sender: FDA-Public Use
  Company Number: US-ASTRAZENECA-2006UW24708

PATIENT
  Age: 32 Year
  Sex: Male
  Weight: 95.5 kg

DRUGS (5)
  1. SEROQUEL [Suspect]
     Indication: MENTAL DISORDER
     Route: 048
     Dates: start: 19980101
  2. HALDOL [Concomitant]
     Dates: start: 19980101
  3. RISPERDAL [Concomitant]
     Dates: start: 19980101
  4. THORAZINE [Concomitant]
     Dates: start: 19980101
  5. ZYPREXA [Concomitant]
     Dates: start: 19980101

REACTIONS (3)
  - BLOOD CHOLESTEROL INCREASED [None]
  - EYE DISORDER [None]
  - TYPE 2 DIABETES MELLITUS [None]
